FAERS Safety Report 22778768 (Version 4)
Quarter: 2023Q4

REPORT INFORMATION
  Report Type: Report from Study
  Country: CO (occurrence: CO)
  Receive Date: 20230802
  Receipt Date: 20231206
  Transmission Date: 20240110
  Serious: Yes (Other)
  Sender: FDA-Public Use
  Company Number: CO-002147023-NVSC2022CO220772

PATIENT
  Sex: Male

DRUGS (3)
  1. COSENTYX [Suspect]
     Active Substance: SECUKINUMAB
     Indication: Psoriasis
     Dosage: 300 MG, QMO (3 YEAR AGO)
     Route: 058
  2. COSENTYX [Suspect]
     Active Substance: SECUKINUMAB
     Dosage: 300 MG, QMO (07 JUN)
     Route: 058
  3. COSENTYX [Suspect]
     Active Substance: SECUKINUMAB
     Dosage: UNK
     Route: 065
     Dates: start: 20231122

REACTIONS (14)
  - Suicidal ideation [Unknown]
  - General physical health deterioration [Unknown]
  - Stress [Unknown]
  - Gait disturbance [Unknown]
  - Feeling abnormal [Unknown]
  - Confusional state [Unknown]
  - Pruritus [Unknown]
  - Irritability [Recovered/Resolved]
  - Anxiety [Recovered/Resolved]
  - Psoriasis [Recovered/Resolved]
  - Skin plaque [Recovered/Resolved]
  - Blister [Recovered/Resolved]
  - Influenza [Recovered/Resolved]
  - Product distribution issue [Unknown]
